FAERS Safety Report 22252183 (Version 2)
Quarter: 2023Q2

REPORT INFORMATION
  Report Type: Spontaneous
  Country: JP (occurrence: JP)
  Receive Date: 20230426
  Receipt Date: 20230502
  Transmission Date: 20230722
  Serious: Yes (Death, Other)
  Sender: FDA-Public Use
  Company Number: JP-TAKEDA-2023TJP005079

PATIENT
  Age: 9 Decade
  Sex: Male

DRUGS (1)
  1. LEUPLIN [Suspect]
     Active Substance: LEUPROLIDE ACETATE
     Indication: Product used for unknown indication
     Dosage: 3.75 MILLIGRAM, Q4WEEKS?LEUPLIN FOR INJECTION KIT 3.75 MG
     Route: 058
     Dates: start: 201301

REACTIONS (4)
  - Dementia [Fatal]
  - Muscular weakness [Unknown]
  - Periarthritis [Not Recovered/Not Resolved]
  - Pneumonia [Fatal]

NARRATIVE: CASE EVENT DATE: 20130118
